FAERS Safety Report 25869167 (Version 1)
Quarter: 2025Q3

REPORT INFORMATION
  Report Type: Spontaneous
  Country: US (occurrence: None)
  Receive Date: 20250930
  Receipt Date: 20250930
  Transmission Date: 20251021
  Serious: Yes (Hospitalization)
  Sender: FDA-CTU
  Company Number: None

PATIENT
  Age: 78 Year
  Sex: Male
  Weight: 99 kg

DRUGS (1)
  1. CARFILZOMIB [Suspect]
     Active Substance: CARFILZOMIB
     Indication: Plasma cell myeloma
     Dates: start: 20250618, end: 20250620

REACTIONS (5)
  - Adverse drug reaction [None]
  - Acute kidney injury [None]
  - Urine output decreased [None]
  - Blood creatinine increased [None]
  - Renal tubular injury [None]

NARRATIVE: CASE EVENT DATE: 20250620
